FAERS Safety Report 6569327-1 (Version None)
Quarter: 2010Q1

REPORT INFORMATION
  Report Type: 
  Country: None (occurrence: None)
  Receive Date: 20100129
  Receipt Date: 20100111
  Transmission Date: 20100710
  Serious: Yes (Death)
  Sender: FDA-Public Use
  Company Number: 005534

PATIENT
  Age: 90 Year
  Sex: Female

DRUGS (8)
  1. METOLAZONE [Suspect]
  2. DILTIAZEM HCL [Suspect]
  3. GLYBURIDE [Suspect]
  4. TENORMIN [Suspect]
  5. WARFARIN SODIUM [Suspect]
  6. FUROSEMIDE [Suspect]
  7. POTASSIUM CHLORIDE [Suspect]
  8. HYDRALAZINE [Suspect]

REACTIONS (1)
  - MEDICATION ERROR [None]
